FAERS Safety Report 10685606 (Version 1)
Quarter: 2014Q4

REPORT INFORMATION
  Report Type: Spontaneous
  Country: US (occurrence: US)
  Receive Date: 20141231
  Receipt Date: 20141231
  Transmission Date: 20150529
  Serious: Yes (Hospitalization, Other)
  Sender: FDA-Public Use
  Company Number: US-GLAXOSMITHKLINE INC.-US2014GSK044087

PATIENT
  Sex: Female

DRUGS (2)
  1. BACTRIM [Suspect]
     Active Substance: SULFAMETHOXAZOLE\TRIMETHOPRIM
     Indication: PRODUCT USED FOR UNKNOWN INDICATION
     Dosage: UNK, U
     Route: 065
  2. MEPRON [Suspect]
     Active Substance: ATOVAQUONE
     Indication: INFECTION PROPHYLAXIS
     Dosage: UNK, U
     Route: 065
     Dates: start: 201411

REACTIONS (2)
  - Drug hypersensitivity [Unknown]
  - Hospitalisation [Not Recovered/Not Resolved]
